FAERS Safety Report 19123263 (Version 2)
Quarter: 2021Q2

REPORT INFORMATION
  Report Type: Spontaneous
  Country: US (occurrence: US)
  Receive Date: 20210412
  Receipt Date: 20210419
  Transmission Date: 20210717
  Serious: No
  Sender: FDA-Public Use
  Company Number: US-PFIZER INC-2021376818

PATIENT
  Age: 77 Year
  Sex: Male
  Weight: 73.92 kg

DRUGS (2)
  1. BCG VACCINE [Concomitant]
     Active Substance: BCG VACCINE
     Dosage: UNK
  2. SUTENT [Suspect]
     Active Substance: SUNITINIB MALATE
     Indication: AMYLOIDOSIS
     Dosage: 50 MG, DAILY (1 CAPSULE BY MOUTH)
     Route: 048
     Dates: start: 20201218

REACTIONS (3)
  - Palpitations [Unknown]
  - Off label use [Unknown]
  - Heart rate decreased [Unknown]
